FAERS Safety Report 6042068-5 (Version None)
Quarter: 2009Q1

REPORT INFORMATION
  Report Type: 
  Country: None (occurrence: None)
  Receive Date: 20090116
  Receipt Date: 20080417
  Transmission Date: 20090719
  Serious: No
  Sender: FDA-Public Use
  Company Number: US-BAYER-200811753BCC

PATIENT
  Age: 87 Year
  Sex: Male
  Weight: 70 kg

DRUGS (8)
  1. ALEVE [Suspect]
     Indication: ARTHRITIS
     Dosage: UNIT DOSE: 220 MG
     Route: 048
     Dates: start: 20080412, end: 20080412
  2. AGGRENOX [Concomitant]
  3. BENICAR [Concomitant]
  4. FLOMAX [Concomitant]
  5. VYTORIN [Concomitant]
  6. ARICEPT [Concomitant]
  7. CENTRUM [Concomitant]
  8. FISH OIL [Concomitant]

REACTIONS (2)
  - BLISTER [None]
  - URTICARIA [None]
